FAERS Safety Report 5419384-0 (Version None)
Quarter: 2007Q3

REPORT INFORMATION
  Report Type: 
  Country: None (occurrence: None)
  Receive Date: 20070820
  Receipt Date: 20070806
  Transmission Date: 20080115
  Serious: Yes (Other)
  Sender: FDA-Public Use
  Company Number: PHHO2007AR12381

PATIENT
  Age: 58 Year
  Sex: Female

DRUGS (1)
  1. RECLAST [Suspect]
     Indication: METASTASES TO BONE
     Dosage: 5 MG, UNK
     Dates: start: 20070628

REACTIONS (6)
  - DIZZINESS [None]
  - HEADACHE [None]
  - INFLUENZA LIKE ILLNESS [None]
  - LOSS OF CONSCIOUSNESS [None]
  - PYREXIA [None]
  - VOMITING [None]
